FAERS Safety Report 15466388 (Version 2)
Quarter: 2018Q4

REPORT INFORMATION
  Report Type: Spontaneous
  Country: US (occurrence: US)
  Receive Date: 20181004
  Receipt Date: 20181210
  Transmission Date: 20190204
  Serious: Yes (Hospitalization)
  Sender: FDA-Public Use
  Company Number: US-ACTELION-A-US2018-179612

PATIENT
  Age: 42 Year
  Sex: Female
  Weight: 89.8 kg

DRUGS (4)
  1. ADCIRCA [Concomitant]
     Active Substance: TADALAFIL
  2. ELIQUIS [Concomitant]
     Active Substance: APIXABAN
  3. UPTRAVI [Suspect]
     Active Substance: SELEXIPAG
     Indication: PULMONARY ARTERIAL HYPERTENSION
     Dosage: 200 MCG, BID
     Route: 048
  4. LETAIRIS [Concomitant]
     Active Substance: AMBRISENTAN

REACTIONS (3)
  - Malaise [Unknown]
  - Fluid retention [Unknown]
  - Dyspnoea [Unknown]
